FAERS Safety Report 5895367-1 (Version None)
Quarter: 2008Q3

REPORT INFORMATION
  Report Type: 
  Country: None (occurrence: None)
  Receive Date: 20080923
  Receipt Date: 20080923
  Transmission Date: 20090109
  Serious: Yes (Hospitalization, Other)
  Sender: FDA-Public Use
  Company Number: None

PATIENT
  Age: 68 Year
  Sex: Male
  Weight: 90.7194 kg

DRUGS (1)
  1. GENTAMICIN [Suspect]
     Indication: OSTEOMYELITIS
     Dosage: 380 TO 450 TWICE A DAY IV DRIP
     Route: 041
     Dates: start: 20080307, end: 20080324

REACTIONS (1)
  - THERAPEUTIC AGENT TOXICITY [None]
